FAERS Safety Report 17213379 (Version 1)
Quarter: 2019Q4

REPORT INFORMATION
  Report Type: Spontaneous
  Country: CA (occurrence: CA)
  Receive Date: 20191230
  Receipt Date: 20191230
  Transmission Date: 20200122
  Serious: Yes (Hospitalization)
  Sender: FDA-Public Use
  Company Number: CA-PFIZER INC-2016023938

PATIENT
  Age: 84 Year
  Sex: Female
  Weight: 63.49 kg

DRUGS (10)
  1. XELJANZ [Suspect]
     Active Substance: TOFACITINIB CITRATE
     Dosage: 5 MG, 1X/DAY
     Route: 048
     Dates: start: 2019
  2. XELJANZ [Suspect]
     Active Substance: TOFACITINIB CITRATE
     Dosage: 2.5 MG, 2X/DAY
     Route: 048
     Dates: start: 2019, end: 2019
  3. XELJANZ [Suspect]
     Active Substance: TOFACITINIB CITRATE
     Indication: RHEUMATOID ARTHRITIS
     Dosage: 5 MG, TWICE DAILY (BID)
     Route: 048
     Dates: start: 20151214, end: 2017
  4. XELJANZ [Suspect]
     Active Substance: TOFACITINIB CITRATE
     Dosage: 15 MG, DAILY(5MG BID + 2.5MG BID)
     Route: 048
     Dates: start: 2019, end: 2019
  5. XELJANZ [Suspect]
     Active Substance: TOFACITINIB CITRATE
     Dosage: 5 MG, 1X/DAY
     Route: 048
     Dates: start: 2019, end: 2019
  6. XELJANZ [Suspect]
     Active Substance: TOFACITINIB CITRATE
     Dosage: 5 MG, 2X/DAY
     Route: 048
     Dates: start: 2017
  7. METHOTREXATE. [Concomitant]
     Active Substance: METHOTREXATE
     Dosage: 20 MG, WEEKLY
     Dates: start: 201406
  8. PLAQUENIL [Concomitant]
     Active Substance: HYDROXYCHLOROQUINE SULFATE
     Indication: RHEUMATOID ARTHRITIS
     Dosage: 200 MG, DAILY
  9. XELJANZ [Suspect]
     Active Substance: TOFACITINIB CITRATE
     Dosage: 5 MG, 1X/DAY
     Route: 048
     Dates: start: 2017, end: 2017
  10. XELJANZ [Suspect]
     Active Substance: TOFACITINIB CITRATE
     Dosage: 15 MG, UNK (5MG BID + 5MG OD)
     Route: 048
     Dates: start: 2019, end: 2019

REACTIONS (11)
  - Pain in extremity [Unknown]
  - Liver disorder [Recovered/Resolved]
  - Product use issue [Unknown]
  - Confusional state [Unknown]
  - Condition aggravated [Recovered/Resolved]
  - Back pain [Unknown]
  - Off label use [Unknown]
  - Pelvic fracture [Unknown]
  - Headache [Unknown]
  - Prescribed overdose [Unknown]
  - Creatinine renal clearance decreased [Not Recovered/Not Resolved]

NARRATIVE: CASE EVENT DATE: 201803
